FAERS Safety Report 24750525 (Version 1)
Quarter: 2024Q4

REPORT INFORMATION
  Report Type: Spontaneous
  Country: FR (occurrence: FR)
  Receive Date: 20241218
  Receipt Date: 20241218
  Transmission Date: 20250115
  Serious: Yes (Other)
  Sender: ALEXION PHARMACEUTICALS
  Company Number: None

PATIENT
  Age: 69 Year
  Weight: 51 kg

DRUGS (6)
  1. LYNPARZA [Suspect]
     Active Substance: OLAPARIB
     Indication: Ovarian cancer
     Dosage: 600 MILLIGRAM, QD
  2. LYNPARZA [Suspect]
     Active Substance: OLAPARIB
     Dosage: 600 MILLIGRAM, QD
     Route: 048
  3. LYNPARZA [Suspect]
     Active Substance: OLAPARIB
     Dosage: 600 MILLIGRAM, QD
  4. LYNPARZA [Suspect]
     Active Substance: OLAPARIB
     Dosage: 600 MILLIGRAM, QD
     Route: 048
  5. AVASTIN [Suspect]
     Active Substance: BEVACIZUMAB
     Indication: Ovarian cancer
     Dosage: UNK
     Route: 042
  6. AVASTIN [Suspect]
     Active Substance: BEVACIZUMAB
     Dosage: UNK

REACTIONS (1)
  - Pancytopenia [Not Recovered/Not Resolved]
